FAERS Safety Report 11846342 (Version 3)
Quarter: 2016Q2

REPORT INFORMATION
  Report Type: Report from Study
  Country: US (occurrence: US)
  Receive Date: 20151217
  Receipt Date: 20160530
  Transmission Date: 20160815
  Serious: Yes (Other)
  Sender: FDA-Public Use
  Company Number: US-AMGEN-USASP2015132991

PATIENT
  Age: 69 Year
  Sex: Female

DRUGS (1)
  1. ENBREL [Suspect]
     Active Substance: ETANERCEPT
     Indication: RHEUMATOID ARTHRITIS
     Dosage: UNK
     Route: 065

REACTIONS (6)
  - Oedema peripheral [Unknown]
  - Injection site pain [Unknown]
  - Upper limb fracture [Unknown]
  - Abasia [Unknown]
  - Fall [Unknown]
  - Urinary tract infection [Unknown]
